FAERS Safety Report 16585184 (Version 1)
Quarter: 2019Q3

REPORT INFORMATION
  Report Type: Spontaneous
  Country: US (occurrence: US)
  Receive Date: 20190715
  Receipt Date: 20190715
  Transmission Date: 20191004
  Serious: Yes (Hospitalization, Disabling, Other)
  Sender: FDA-Public Use
  Company Number: None

PATIENT
  Age: 67 Year
  Sex: Male
  Weight: 108.86 kg

DRUGS (6)
  1. CLONAZEPAM. [Concomitant]
     Active Substance: CLONAZEPAM
  2. MULTI-VITAMINS [Concomitant]
  3. ZOLPIDEM [Concomitant]
     Active Substance: ZOLPIDEM TARTRATE
  4. TAMSULOSIN [Concomitant]
     Active Substance: TAMSULOSIN
  5. ARMOUR THYROID [Suspect]
     Active Substance: THYROID, PORCINE
     Indication: HYPOTHYROIDISM
     Dosage: ?          QUANTITY:90 DF DOSAGE FORM;?
     Route: 048
     Dates: start: 20180523, end: 20180708
  6. DEXTROAMPHETAMINE. [Concomitant]
     Active Substance: DEXTROAMPHETAMINE

REACTIONS (3)
  - Haematoma muscle [None]
  - Arthralgia [None]
  - Gait disturbance [None]

NARRATIVE: CASE EVENT DATE: 20180701
